FAERS Safety Report 10261612 (Version 1)
Quarter: 2014Q2

REPORT INFORMATION
  Report Type: Spontaneous
  Country: US (occurrence: US)
  Receive Date: 20140626
  Receipt Date: 20140626
  Transmission Date: 20141212
  Serious: No
  Sender: FDA-Public Use
  Company Number: US-MYLANLABS-2014S1007366

PATIENT
  Age: 61 Year
  Sex: Female
  Weight: 63.5 kg

DRUGS (5)
  1. ATORVASTATIN CALCIUM TABLETS [Suspect]
     Route: 048
     Dates: start: 201403, end: 20140327
  2. SEROQUEL [Concomitant]
     Indication: HORMONE LEVEL ABNORMAL
     Dosage: 300MG
  3. LISINOPRIL [Concomitant]
     Indication: BLOOD PRESSURE INCREASED
     Dosage: 25MG
  4. SYNTHROID [Concomitant]
     Indication: HYPOTHYROIDISM
  5. HALDOL [Concomitant]
     Indication: HORMONE LEVEL ABNORMAL

REACTIONS (1)
  - Myalgia [Not Recovered/Not Resolved]
